FAERS Safety Report 21383202 (Version 3)
Quarter: 2025Q1

REPORT INFORMATION
  Report Type: Spontaneous
  Country: US (occurrence: US)
  Receive Date: 20220927
  Receipt Date: 20250211
  Transmission Date: 20250409
  Serious: Yes (Other)
  Sender: SANOFI AVENTIS
  Company Number: US-SA-SAC20220927000572

PATIENT
  Age: 49 Year
  Sex: Male
  Weight: 109.09 kg

DRUGS (9)
  1. DUPIXENT [Suspect]
     Active Substance: DUPILUMAB
     Indication: Nasal polyps
     Dosage: 300 MG QOW
     Route: 058
     Dates: start: 20220803
  2. POTASSIUM [Concomitant]
     Active Substance: POTASSIUM
  3. KRILL OIL OMEGA 3 [Concomitant]
  4. MENAQUINONE 6 [Concomitant]
     Active Substance: MENAQUINONE 6
  5. ZINC [Concomitant]
     Active Substance: ZINC
  6. VITAMIN D2 [Concomitant]
     Active Substance: ERGOCALCIFEROL
  7. VITAMIN C [Concomitant]
     Active Substance: ASCORBIC ACID
  8. AMLODIPINE BESYLATE [Concomitant]
     Active Substance: AMLODIPINE BESYLATE
  9. PREDNISONE [Concomitant]
     Active Substance: PREDNISONE

REACTIONS (4)
  - NSAID exacerbated respiratory disease [Recovered/Resolved]
  - Fatigue [Recovering/Resolving]
  - Arthralgia [Recovered/Resolved]
  - Therapeutic response decreased [Unknown]

NARRATIVE: CASE EVENT DATE: 20220101
